FAERS Safety Report 5766609-8 (Version None)
Quarter: 2008Q2

REPORT INFORMATION
  Report Type: 
  Country: None (occurrence: None)
  Receive Date: 20080610
  Receipt Date: 20080610
  Transmission Date: 20081010
  Serious: No
  Sender: FDA-Public Use
  Company Number: None

PATIENT
  Age: 65 Year
  Sex: Female
  Weight: 58.514 kg

DRUGS (1)
  1. METAMUCIL [Suspect]

REACTIONS (2)
  - DIZZINESS [None]
  - HEADACHE [None]
